FAERS Safety Report 20879942 (Version 1)
Quarter: 2022Q2

REPORT INFORMATION
  Report Type: Spontaneous
  Country: JP (occurrence: JP)
  Receive Date: 20220526
  Receipt Date: 20220526
  Transmission Date: 20220721
  Serious: Yes (Death, Other)
  Sender: FDA-Public Use
  Company Number: US-CELGENE-JPN-20220301086

PATIENT
  Age: 8 Decade
  Sex: Female

DRUGS (1)
  1. VIDAZA [Suspect]
     Active Substance: AZACITIDINE
     Indication: Acute myeloid leukaemia
     Dosage: FREQUENCY TEXT: NOT PROVIDED
     Route: 041
     Dates: start: 20210906, end: 20211212

REACTIONS (1)
  - Respiratory arrest [Fatal]

NARRATIVE: CASE EVENT DATE: 20211201
